FAERS Safety Report 24200763 (Version 1)
Quarter: 2024Q3

REPORT INFORMATION
  Report Type: Spontaneous
  Country: US (occurrence: US)
  Receive Date: 20240812
  Receipt Date: 20240812
  Transmission Date: 20241017
  Serious: No
  Sender: TORRENT
  Company Number: US-TORRENT-00013708

PATIENT
  Age: 40 Year
  Sex: Male

DRUGS (1)
  1. DICHLORPHENAMIDE [Suspect]
     Active Substance: DICHLORPHENAMIDE
     Indication: Familial periodic paralysis
     Dosage: ONE TABLET, ORALLY BID
     Route: 048
     Dates: start: 202407

REACTIONS (1)
  - Adverse drug reaction [Unknown]
